FAERS Safety Report 24046790 (Version 1)
Quarter: 2024Q3

REPORT INFORMATION
  Report Type: Report from Study
  Country: US (occurrence: None)
  Receive Date: 20240703
  Receipt Date: 20240703
  Transmission Date: 20241017
  Serious: Yes (Other)
  Sender: ASTRAZENECA
  Company Number: 2024A150606

PATIENT
  Sex: Female

DRUGS (11)
  1. TAGRISSO [Suspect]
     Active Substance: OSIMERTINIB
     Indication: Lung carcinoma cell type unspecified stage 0
     Route: 048
  2. UCERIS [Concomitant]
     Active Substance: BUDESONIDE
     Dosage: TB2
  3. GLUCOSAMINE SULFATE [Concomitant]
     Active Substance: GLUCOSAMINE SULFATE
  4. BIOTIN [Concomitant]
     Active Substance: BIOTIN
  5. CALCIUM [Concomitant]
     Active Substance: CALCIUM
  6. MELATONIN [Concomitant]
     Active Substance: MELATONIN
  7. METOPROLOL [Concomitant]
     Active Substance: METOPROLOL
     Dosage: S TB2
  8. ONDANSETRON [Concomitant]
     Active Substance: ONDANSETRON
     Dosage: TBD
  9. POTASSIUM [Concomitant]
     Active Substance: POTASSIUM
     Dosage: CH TBC 10 MEQ
  10. TOPIRAMATE [Concomitant]
     Active Substance: TOPIRAMATE
  11. PANTOPRAZOLE [Concomitant]
     Active Substance: PANTOPRAZOLE
     Dosage: TBE

REACTIONS (3)
  - Dehydration [Not Recovered/Not Resolved]
  - Nausea [Not Recovered/Not Resolved]
  - Diarrhoea [Not Recovered/Not Resolved]
